FAERS Safety Report 5265081-4 (Version None)
Quarter: 2007Q1

REPORT INFORMATION
  Report Type: 
  Country: None (occurrence: None)
  Receive Date: 20061122
  Receipt Date: 20051201
  Transmission Date: 20070707
  Serious: Yes (Hospitalization)
  Sender: FDA-Public Use
  Company Number: 2006MP001097

PATIENT
  Age: 51 Year

DRUGS (1)
  1. GLIADEL [Suspect]
     Indication: GLIOBLASTOMA MULTIFORME
     Dosage: 46.2 MG;X1;ICER
     Dates: start: 20051110

REACTIONS (2)
  - BRAIN OEDEMA [None]
  - INCISION SITE INFECTION [None]
